FAERS Safety Report 6156063-9 (Version None)
Quarter: 2009Q2

REPORT INFORMATION
  Report Type: 
  Country: None (occurrence: None)
  Receive Date: 20090413
  Receipt Date: 20090413
  Transmission Date: 20091009
  Serious: No
  Sender: FDA-Public Use
  Company Number: None

PATIENT
  Sex: Female

DRUGS (3)
  1. PHENYTOIN SODIUM [Suspect]
     Indication: GRAND MAL CONVULSION
     Dosage: 600MG DAILY
  2. VALPROATE SODIUM [Concomitant]
  3. CLONAZEPAM [Concomitant]

REACTIONS (11)
  - AMYOTROPHIC LATERAL SCLEROSIS [None]
  - ASTHENIA [None]
  - DIPLOPIA [None]
  - DRUG TOXICITY [None]
  - DYSARTHRIA [None]
  - DYSPHAGIA [None]
  - GAIT DISTURBANCE [None]
  - HYPERREFLEXIA [None]
  - MOTOR NEURONE DISEASE [None]
  - MUSCLE CONTRACTIONS INVOLUNTARY [None]
  - WEIGHT DECREASED [None]
